FAERS Safety Report 4382619-X (Version None)
Quarter: 2004Q2

REPORT INFORMATION
  Report Type: 
  Country: None (occurrence: None)
  Receive Date: 20040616
  Receipt Date: 20040602
  Transmission Date: 20050107
  Serious: Yes (Death)
  Sender: FDA-Public Use
  Company Number: 310017K04USA

PATIENT

DRUGS (3)
  1. GONAL-F [Suspect]
     Indication: INFERTILITY
     Dates: start: 20031101, end: 20031201
  2. CHORIOGONADOTROPIN ALFA [Suspect]
     Indication: INFERTILITY
     Dosage: 1 IN 1 WEES, I.U.
     Route: 015
     Dates: start: 20031210, end: 20031217
  3. PROGESTERONE [Suspect]
     Indication: INFERTILITY
     Dosage: 1 APPLICATORFULL, 1 IN 1 DAYS, I.U.
     Route: 015
     Dates: start: 20031217, end: 20040101

REACTIONS (5)
  - DRUG EXPOSURE DURING PREGNANCY [None]
  - FOETAL CARDIAC DISORDER [None]
  - FOETAL MALFORMATION [None]
  - PLACENTAL DISORDER [None]
  - STILLBIRTH [None]
